FAERS Safety Report 24550140 (Version 1)
Quarter: 2024Q4

REPORT INFORMATION
  Report Type: Spontaneous
  Country: US (occurrence: US)
  Receive Date: 20241025
  Receipt Date: 20241025
  Transmission Date: 20250114
  Serious: No
  Sender: TAKEDA
  Company Number: US-TAKEDA-2024TUS105902

PATIENT

DRUGS (3)
  1. EOHILIA [Suspect]
     Active Substance: BUDESONIDE
     Indication: Eosinophilic oesophagitis
     Dosage: UNK
     Route: 065
  2. BUDESONIDE [Suspect]
     Active Substance: BUDESONIDE
     Indication: Eosinophilic oesophagitis
     Dosage: UNK
  3. SUCRALOSE [Concomitant]
     Active Substance: SUCRALOSE
     Dosage: UNK

REACTIONS (2)
  - Drug ineffective [Unknown]
  - Oral disorder [Recovered/Resolved]
